FAERS Safety Report 13053553 (Version 1)
Quarter: 2016Q4

REPORT INFORMATION
  Report Type: Spontaneous
  Country: US (occurrence: US)
  Receive Date: 20161222
  Receipt Date: 20161222
  Transmission Date: 20170207
  Serious: Yes (Other)
  Sender: FDA-Public Use
  Company Number: US-AMGEN-USASP2016178998

PATIENT
  Age: 57 Year
  Sex: Female

DRUGS (12)
  1. ENBREL [Suspect]
     Active Substance: ETANERCEPT
     Indication: PRODUCT USED FOR UNKNOWN INDICATION
     Dosage: UNK
     Route: 065
  2. XELJANZ [Suspect]
     Active Substance: TOFACITINIB CITRATE
     Indication: RHEUMATOID ARTHRITIS
     Dosage: 5 MG, BID
     Route: 065
     Dates: start: 201601, end: 2016
  3. XELJANZ [Suspect]
     Active Substance: TOFACITINIB CITRATE
     Dosage: 20 MG, UNK
     Route: 065
     Dates: start: 20161117
  4. ZOSTER IMMUNOGLOBULIN [Suspect]
     Active Substance: HUMAN VARICELLA-ZOSTER IMMUNE GLOBULIN
     Indication: PRODUCT USED FOR UNKNOWN INDICATION
     Route: 065
  5. ALBUTEROL. [Concomitant]
     Active Substance: ALBUTEROL
     Dosage: 2 PUFFS
  6. MAGNESIUM [Concomitant]
     Active Substance: MAGNESIUM
     Dosage: 250 MG, UNK
  7. VITAMIN D [Concomitant]
     Active Substance: CHOLECALCIFEROL
     Dosage: 5000 UNITS PER DAY
  8. PROTONIX [Concomitant]
     Active Substance: PANTOPRAZOLE SODIUM
     Dosage: 40 MG, UNK
  9. CALCIUM [Concomitant]
     Active Substance: CALCIUM
     Dosage: 1200 MG, QD
  10. PENICILLIN [Suspect]
     Active Substance: PENICILLIN
     Indication: PRODUCT USED FOR UNKNOWN INDICATION
     Dosage: UNK
     Route: 065
  11. XELJANZ [Suspect]
     Active Substance: TOFACITINIB CITRATE
     Indication: POLYARTHRITIS
     Dosage: 20 MG, UNK
     Route: 065
     Dates: start: 20160909, end: 20161028
  12. TYLENOL [Concomitant]
     Active Substance: ACETAMINOPHEN
     Dosage: UNK

REACTIONS (25)
  - Type 2 diabetes mellitus [Unknown]
  - Folliculitis [Recovering/Resolving]
  - Unevaluable event [Unknown]
  - Muscle incision [Unknown]
  - Bronchitis [Unknown]
  - Carpal tunnel decompression [Unknown]
  - Intervertebral disc protrusion [Unknown]
  - Rheumatoid arthritis [Unknown]
  - Osteotomy [Unknown]
  - Peripheral nerve decompression [Unknown]
  - Wound infection [Unknown]
  - Osteoarthritis [Unknown]
  - Hypersensitivity [Not Recovered/Not Resolved]
  - Asthma [Unknown]
  - Intervertebral disc operation [Unknown]
  - Bursa removal [Unknown]
  - Foot deformity [Unknown]
  - Rotator cuff syndrome [Unknown]
  - Dry mouth [Unknown]
  - Diarrhoea [Unknown]
  - Restless legs syndrome [Unknown]
  - Intervertebral disc degeneration [Unknown]
  - Blood cholesterol abnormal [Unknown]
  - Mitral valve prolapse [Unknown]
  - Back pain [Unknown]

NARRATIVE: CASE EVENT DATE: 20081023
